FAERS Safety Report 11135504 (Version 1)
Quarter: 2015Q2

REPORT INFORMATION
  Report Type: Spontaneous
  Country: DK (occurrence: None)
  Receive Date: 20150521
  Receipt Date: 20150521
  Transmission Date: 20150821
  Serious: Yes (Death)
  Sender: FDA-Public Use
  Company Number: FK201502306

PATIENT
  Age: 60 Year
  Sex: Female

DRUGS (3)
  1. METHYLPREDNISOLONE (MANUFACTURER UNKNOWN) (METHYLPREDNISOLONE SODIUM SUCCINATE) (METHYLPREDNISOLONE SODIUM SUCCINATE) [Suspect]
     Active Substance: METHYLPREDNISOLONE
     Indication: IMMUNOSUPPRESSANT DRUG THERAPY
  2. MYCOPHENOLIC ACID (MYCOPHENOLIC ACID) [Suspect]
     Active Substance: MYCOPHENOLIC ACID
     Indication: IMMUNOSUPPRESSANT DRUG THERAPY
  3. TACROLIMUS (TACROLIMUS) [Suspect]
     Active Substance: TACROLIMUS
     Indication: IMMUNOSUPPRESSANT DRUG THERAPY

REACTIONS (3)
  - JC virus infection [None]
  - Progressive multifocal leukoencephalopathy [None]
  - Infection reactivation [None]
